FAERS Safety Report 24555764 (Version 2)
Quarter: 2024Q4

REPORT INFORMATION
  Report Type: Spontaneous
  Country: US (occurrence: US)
  Receive Date: 20241028
  Receipt Date: 20241106
  Transmission Date: 20250115
  Serious: Yes (Other)
  Sender: ALEXION PHARMACEUTICALS
  Company Number: US-009507513-2410USA006116

PATIENT

DRUGS (18)
  1. LYNPARZA [Suspect]
     Active Substance: OLAPARIB
     Indication: Product used for unknown indication
     Dosage: 300 UNK, BID
  2. LYNPARZA [Suspect]
     Active Substance: OLAPARIB
     Dosage: 300 UNK, BID
  3. LYNPARZA [Suspect]
     Active Substance: OLAPARIB
     Dosage: 300 UNK, BID
  4. LYNPARZA [Suspect]
     Active Substance: OLAPARIB
     Dosage: 300 UNK, BID
  5. LYNPARZA [Suspect]
     Active Substance: OLAPARIB
     Dosage: 150 UNK, BID
  6. LYNPARZA [Suspect]
     Active Substance: OLAPARIB
     Dosage: 150 UNK, BID
  7. LYNPARZA [Suspect]
     Active Substance: OLAPARIB
     Dosage: 150 UNK, BID
  8. LYNPARZA [Suspect]
     Active Substance: OLAPARIB
     Dosage: 150 UNK, BID
  9. LYNPARZA [Suspect]
     Active Substance: OLAPARIB
     Dosage: 100 UNK, BID
  10. LYNPARZA [Suspect]
     Active Substance: OLAPARIB
     Dosage: 100 UNK, BID
  11. LYNPARZA [Suspect]
     Active Substance: OLAPARIB
     Dosage: 100 UNK, BID
  12. LYNPARZA [Suspect]
     Active Substance: OLAPARIB
     Dosage: 100 UNK, BID
  13. LYNPARZA [Suspect]
     Active Substance: OLAPARIB
     Dosage: 300 BID
  14. LYNPARZA [Suspect]
     Active Substance: OLAPARIB
     Dosage: 300 BID
  15. LYNPARZA [Suspect]
     Active Substance: OLAPARIB
     Dosage: 150 BID
  16. LYNPARZA [Suspect]
     Active Substance: OLAPARIB
     Dosage: 150 BID
  17. LYNPARZA [Suspect]
     Active Substance: OLAPARIB
     Dosage: 100 BID
  18. LYNPARZA [Suspect]
     Active Substance: OLAPARIB
     Dosage: 100 BID

REACTIONS (2)
  - Acute kidney injury [Recovering/Resolving]
  - Creatinine renal clearance increased [Recovering/Resolving]
